FAERS Safety Report 17098022 (Version 1)
Quarter: 2019Q4

REPORT INFORMATION
  Report Type: Spontaneous
  Country: US (occurrence: US)
  Receive Date: 20191202
  Receipt Date: 20191202
  Transmission Date: 20200122
  Serious: No
  Sender: FDA-Public Use
  Company Number: US-APOTEX-2019AP017677

PATIENT
  Sex: Male

DRUGS (1)
  1. NICOTINE. [Suspect]
     Active Substance: NICOTINE
     Indication: SMOKING CESSATION THERAPY
     Dosage: 1 DF, QD ON THE UPPER ARM
     Route: 062
     Dates: start: 20190621

REACTIONS (5)
  - Product adhesion issue [Unknown]
  - Application site vesicles [Unknown]
  - Application site nodule [Unknown]
  - Application site erythema [Unknown]
  - Drug ineffective [Unknown]
